FAERS Safety Report 14530873 (Version 5)
Quarter: 2018Q2

REPORT INFORMATION
  Report Type: Spontaneous
  Country: JP (occurrence: JP)
  Receive Date: 20180214
  Receipt Date: 20180430
  Transmission Date: 20180711
  Serious: Yes (Other)
  Sender: FDA-Public Use
  Company Number: JP-PFIZER INC-2018060151

PATIENT

DRUGS (2)
  1. XALKORI [Suspect]
     Active Substance: CRIZOTINIB
     Indication: NON-SMALL CELL LUNG CANCER
     Dosage: UNK
     Route: 048
     Dates: end: 20180209
  2. XALKORI [Suspect]
     Active Substance: CRIZOTINIB
     Dosage: UNK
     Route: 048

REACTIONS (5)
  - Alanine aminotransferase increased [Recovering/Resolving]
  - Device related infection [Unknown]
  - Device dislocation [Unknown]
  - Aspartate aminotransferase increased [Recovering/Resolving]
  - Joint dislocation [Unknown]
